FAERS Safety Report 8447077-4 (Version None)
Quarter: 2012Q2

REPORT INFORMATION
  Report Type: 
  Country: None (occurrence: None)
  Receive Date: 20120612
  Receipt Date: 20120531
  Transmission Date: 20120825
  Serious: Yes (Hospitalization)
  Sender: FDA-Public Use
  Company Number: GER/UKI/12/0023695

PATIENT
  Age: 37 Year
  Sex: Male

DRUGS (8)
  1. QUETIAPINE FUMARATE [Concomitant]
  2. DOXYCYCLINE [Concomitant]
  3. TRIMETHIPRIM (TRIMETHOPRIM) [Concomitant]
  4. DOXYCYCLINE [Concomitant]
  5. OMEPRAZOLE [Suspect]
     Indication: GASTROINTESTINAL DISORDER
     Dosage: 20 MG, 1 IN 1 D, ORAL
     Route: 048
     Dates: start: 20110427
  6. OMEPRAZOLE [Suspect]
     Indication: GASTROINTESTINAL DISORDER
     Dosage: 20 MG, 1 IN 1 D, ORAL
     Route: 048
     Dates: start: 20110603, end: 20111001
  7. TRIMETHIPRIM (TRIMETHOPRIM) [Concomitant]
  8. LAXIDO (LAXIDO) [Concomitant]

REACTIONS (14)
  - PYREXIA [None]
  - PHOTOSENSITIVITY REACTION [None]
  - DRY SKIN [None]
  - NAUSEA [None]
  - GASTRIC DISORDER [None]
  - ANXIETY [None]
  - ANAEMIA [None]
  - HYPERCHLORHYDRIA [None]
  - DENTAL CARIES [None]
  - PAIN [None]
  - VOMITING [None]
  - HAIR COLOUR CHANGES [None]
  - TEMPERATURE REGULATION DISORDER [None]
  - OCULAR ICTERUS [None]
